FAERS Safety Report 5986661-4 (Version None)
Quarter: 2008Q4

REPORT INFORMATION
  Report Type: 
  Country: None (occurrence: None)
  Receive Date: 20081209
  Receipt Date: 20081128
  Transmission Date: 20090506
  Serious: Yes (Hospitalization)
  Sender: FDA-Public Use
  Company Number: BR-ROCHE-599997

PATIENT
  Sex: Female
  Weight: 53.3 kg

DRUGS (2)
  1. METHOXY POLYETHYLENE GLYCOL-EPOETIN BETA [Suspect]
     Dosage: AS PER PROTOCOL, 120, 200 OR 360 UG EVERY 4 WEEKS
     Route: 058
  2. EPOETIN ALFA [Concomitant]
     Dosage: AS PER PROTOCOL, PATIENT RECEIVES EPOETIN ALFA IN THE WEEK PRECEDING FIRST STUDY DRUG
     Route: 065

REACTIONS (2)
  - PNEUMONIA [None]
  - UPPER GASTROINTESTINAL HAEMORRHAGE [None]
